FAERS Safety Report 8908248 (Version 2)
Quarter: 2012Q4

REPORT INFORMATION
  Report Type: 
  Country: CA (occurrence: CA)
  Receive Date: 20121114
  Receipt Date: 20121203
  Transmission Date: 20130627
  Serious: Yes (Hospitalization)
  Sender: FDA-Public Use
  Company Number: PHHY2012CA104726

PATIENT
  Sex: Female

DRUGS (2)
  1. ACLASTA [Suspect]
     Indication: OSTEOPOROSIS
     Route: 042
     Dates: start: 20111003
  2. ACLASTA [Suspect]
     Dosage: UNK
     Route: 042
     Dates: start: 20121016

REACTIONS (1)
  - Respiratory distress [Unknown]
